FAERS Safety Report 10527049 (Version 1)
Quarter: 2014Q4

REPORT INFORMATION
  Report Type: Spontaneous
  Country: US (occurrence: None)
  Receive Date: 20141015
  Receipt Date: 20141015
  Transmission Date: 20150528
  Serious: No
  Sender: FDA-Public Use
  Company Number: None

PATIENT
  Age: 11 Year
  Sex: Female
  Weight: 31.75 kg

DRUGS (1)
  1. DAYTRANA [Suspect]
     Active Substance: METHYLPHENIDATE
     Indication: ATTENTION DEFICIT/HYPERACTIVITY DISORDER
     Dosage: APPLIED AS MEDICATED PATCH TO SKIN
     Dates: start: 20100915, end: 20130915

REACTIONS (2)
  - Pigmentation disorder [None]
  - Application site reaction [None]

NARRATIVE: CASE EVENT DATE: 20141013
